FAERS Safety Report 13552324 (Version 1)
Quarter: 2017Q2

REPORT INFORMATION
  Report Type: Report from Study
  Country: IT (occurrence: IT)
  Receive Date: 20170517
  Receipt Date: 20170517
  Transmission Date: 20170830
  Serious: Yes (Other)
  Sender: FDA-Public Use
  Company Number: IT-ROCHE-1934014

PATIENT
  Sex: Female
  Weight: 74 kg

DRUGS (4)
  1. 5-FLUOROURACIL [Suspect]
     Active Substance: FLUOROURACIL
     Indication: COLORECTAL CANCER METASTATIC
     Dosage: MOST RECENT DOSE: 23/MAR/2017 (4320 MG).
     Route: 042
     Dates: start: 20170323
  2. 5-FLUOROURACIL [Suspect]
     Active Substance: FLUOROURACIL
     Dosage: MOST RECENT DOSE: 23/MAR/2017 (720 MG).
     Route: 040
     Dates: start: 20170323
  3. OXALIPLATIN. [Suspect]
     Active Substance: OXALIPLATIN
     Indication: COLORECTAL CANCER METASTATIC
     Dosage: MOST RECENT DOSE: 23/MAR/2017 (180 MG).
     Route: 042
     Dates: start: 20170323
  4. BEVACIZUMAB [Suspect]
     Active Substance: BEVACIZUMAB
     Indication: COLORECTAL CANCER METASTATIC
     Dosage: MOST RECENT DOSE: 23/MAR/2017 (385 MG).?DISCONTINUED ON 03/MAY/2017
     Route: 042
     Dates: start: 20170323, end: 20170503

REACTIONS (3)
  - Epilepsy [Recovered/Resolved with Sequelae]
  - Loss of consciousness [Recovered/Resolved with Sequelae]
  - Hypertension [Recovered/Resolved with Sequelae]

NARRATIVE: CASE EVENT DATE: 20170326
